FAERS Safety Report 9288070 (Version 1)
Quarter: 2013Q2

REPORT INFORMATION
  Report Type: Spontaneous
  Country: US (occurrence: None)
  Receive Date: 20130513
  Receipt Date: 20130513
  Transmission Date: 20140414
  Serious: No
  Sender: FDA-Public Use
  Company Number: None

PATIENT
  Age: 66 Year
  Sex: Female
  Weight: 49.9 kg

DRUGS (2)
  1. HYDROGEN PEROXIDE [Suspect]
     Indication: LACERATION
     Dosage: VARIES
     Route: 050
     Dates: start: 20130410, end: 20130510
  2. HYDROGEN PEROXIDE [Suspect]
     Indication: DENTAL DISORDER PROPHYLAXIS
     Dosage: VARIES
     Route: 050
     Dates: start: 20130410, end: 20130510

REACTIONS (2)
  - Drug ineffective [None]
  - Product quality issue [None]
